FAERS Safety Report 4326756-4 (Version None)
Quarter: 2004Q1

REPORT INFORMATION
  Report Type: 
  Country: None (occurrence: None)
  Receive Date: 20040322
  Receipt Date: 20040206
  Transmission Date: 20041129
  Serious: No
  Sender: FDA-Public Use
  Company Number: PHEH2004US01640

PATIENT
  Age: 61 Year
  Sex: Female

DRUGS (2)
  1. ZOMETA [Suspect]
     Indication: METASTASES TO BONE
     Dosage: MONTHLY, INTRAVENOUS
     Route: 042
     Dates: start: 20020701
  2. GEMZAR [Concomitant]

REACTIONS (2)
  - ANAEMIA [None]
  - BONE DISORDER [None]
